FAERS Safety Report 8473874-5 (Version None)
Quarter: 2012Q2

REPORT INFORMATION
  Report Type: 
  Country: None (occurrence: None)
  Receive Date: 20120628
  Receipt Date: 20120126
  Transmission Date: 20120825
  Serious: Yes (Death)
  Sender: FDA-Public Use
  Company Number: US-MYLANLABS-2012S1000583

PATIENT
  Sex: Male

DRUGS (4)
  1. DIAZEPAM [Concomitant]
  2. HYDROCODONE BITARTRATE [Concomitant]
  3. CLOZAPINE [Suspect]
     Route: 048
     Dates: start: 20110528
  4. METOPROLOL TARTRATE [Concomitant]

REACTIONS (1)
  - DEATH [None]
